FAERS Safety Report 7147425-1 (Version None)
Quarter: 2010Q4

REPORT INFORMATION
  Report Type: 
  Country: None (occurrence: None)
  Receive Date: 20101209
  Receipt Date: 20100215
  Transmission Date: 20110411
  Serious: Yes (Death, Hospitalization)
  Sender: FDA-Public Use
  Company Number: US-ACTELION-A-NJ2006-12981

PATIENT
  Sex: Male

DRUGS (3)
  1. BOSENTAN TABLET 62.5 MG US [Suspect]
     Indication: PULMONARY ARTERIAL HYPERTENSION
     Dosage: 125 MG, BID
     Route: 048
     Dates: start: 20050614, end: 20060902
  2. BOSENTAN TABLET 62.5 MG US [Suspect]
     Dosage: 62.5 MG, BID
     Route: 048
     Dates: start: 20050513, end: 20060613
  3. BOSENTAN TABLET 62.5 MG US [Suspect]
     Dosage: 125 MG, BID
     Route: 048

REACTIONS (4)
  - DEATH [None]
  - PNEUMONIA [None]
  - SKIN EXFOLIATION [None]
  - SUNBURN [None]
